FAERS Safety Report 11185052 (Version 1)
Quarter: 2015Q2

REPORT INFORMATION
  Report Type: Spontaneous
  Country: CA (occurrence: None)
  Receive Date: 20150611
  Receipt Date: 20150611
  Transmission Date: 20150821
  Serious: No
  Sender: FDA-Public Use
  Company Number: None

PATIENT
  Age: 52 Year
  Sex: Female
  Weight: 113.4 kg

DRUGS (3)
  1. VITAMIN B12 [Concomitant]
     Active Substance: CYANOCOBALAMIN
  2. CARBAMAZAPINE [Suspect]
     Active Substance: CARBAMAZEPINE
     Indication: TRIGEMINAL NEURALGIA
     Dosage: 1/2 TABLET TWICE DAILY
     Route: 048
     Dates: start: 20150514, end: 20150610
  3. PANTOPRAZOLE [Concomitant]
     Active Substance: PANTOPRAZOLE SODIUM

REACTIONS (9)
  - Pyrexia [None]
  - Hypersensitivity [None]
  - Lip ulceration [None]
  - Rash erythematous [None]
  - Throat tightness [None]
  - Dizziness [None]
  - Nausea [None]
  - Rash papular [None]
  - Tongue ulceration [None]

NARRATIVE: CASE EVENT DATE: 20150606
